FAERS Safety Report 7536199-8 (Version None)
Quarter: 2011Q2

REPORT INFORMATION
  Report Type: 
  Country: None (occurrence: None)
  Receive Date: 20110602
  Receipt Date: 20110520
  Transmission Date: 20111010
  Serious: Yes (Death)
  Sender: FDA-Public Use
  Company Number: 2011BN000050

PATIENT
  Age: 74 Year
  Sex: Female

DRUGS (2)
  1. MELPHALAN HYDROCHLORIDE [Suspect]
     Indication: MALIGNANT MELANOMA
     Dosage: 10 MG/L;
  2. TNF ALPHA (NO PREF. NAME) [Suspect]
     Indication: MALIGNANT MELANOMA
     Dosage: 2 MG;

REACTIONS (3)
  - RENAL FAILURE ACUTE [None]
  - PERIPHERAL ISCHAEMIA [None]
  - FEMORAL ARTERY EMBOLISM [None]
